APPROVED DRUG PRODUCT: SUNITINIB MALATE
Active Ingredient: SUNITINIB MALATE
Strength: EQ 37.5MG BASE
Dosage Form/Route: CAPSULE;ORAL
Application: A218012 | Product #003 | TE Code: AB
Applicant: FOSUN WANBANG (JIANGSU) PHARMACEUTICAL GROUP CO LTD
Approved: Aug 21, 2023 | RLD: No | RS: No | Type: RX